FAERS Safety Report 8859994 (Version 4)
Quarter: 2013Q1

REPORT INFORMATION
  Report Type: Report from Study
  Country: JP (occurrence: JP)
  Receive Date: 20121025
  Receipt Date: 20130326
  Transmission Date: 20140127
  Serious: Yes (Hospitalization)
  Sender: FDA-Public Use
  Company Number: JP-PFIZER INC-2012264060

PATIENT
  Age: 56 Year
  Sex: Male
  Weight: 41.6 kg

DRUGS (2)
  1. XALKORI [Suspect]
     Indication: NON-SMALL CELL LUNG CANCER
     Dosage: 250 MG, 2X/DAY
     Route: 048
     Dates: start: 20121018, end: 20121019
  2. NAUZELIN [Suspect]
     Dosage: 10 MG, 3X/DAY
     Route: 048
     Dates: start: 20121018, end: 20121019

REACTIONS (1)
  - Interstitial lung disease [Recovered/Resolved]
